FAERS Safety Report 12249122 (Version 1)
Quarter: 2016Q2

REPORT INFORMATION
  Report Type: Report from Study
  Country: GB (occurrence: GB)
  Receive Date: 20160408
  Receipt Date: 20160408
  Transmission Date: 20160815
  Serious: Yes (Other)
  Sender: FDA-Public Use
  Company Number: GB-UCBSA-2016009665

PATIENT
  Age: 49 Year
  Sex: Male

DRUGS (7)
  1. CERTOLIZUMAB PEGOL [Suspect]
     Active Substance: CERTOLIZUMAB PEGOL
     Dosage: 200 MG, EV 2 WEEKS(QOW)
     Route: 058
     Dates: start: 201602, end: 2016
  2. CERTOLIZUMAB PEGOL [Suspect]
     Active Substance: CERTOLIZUMAB PEGOL
     Dosage: 400 MG, UNK
     Dates: start: 20160322
  3. FOLIC ACID. [Concomitant]
     Active Substance: FOLIC ACID
     Indication: PRODUCT USED FOR UNKNOWN INDICATION
     Dosage: UNK
  4. METOJECT [Suspect]
     Active Substance: METHOTREXATE SODIUM
     Indication: PRODUCT USED FOR UNKNOWN INDICATION
     Dosage: 400 MG, EV 2 WEEKS(QOW)
     Dates: start: 201601, end: 2016
  5. CERTOLIZUMAB PEGOL [Suspect]
     Active Substance: CERTOLIZUMAB PEGOL
     Indication: RHEUMATOID ARTHRITIS
     Dosage: 400 MG, EV 2 WEEKS(QOW)
     Route: 058
     Dates: start: 20160108, end: 201602
  6. CERTOLIZUMAB PEGOL [Suspect]
     Active Substance: CERTOLIZUMAB PEGOL
     Dosage: HE IS INJECTING WHEN HE FEELS HE NEEDS IT, HOWEVER IT IS NOT MORE THAN 2 WEEKLY
     Dates: start: 2016, end: 2016
  7. IRON [Concomitant]
     Active Substance: IRON
     Indication: PRODUCT USED FOR UNKNOWN INDICATION
     Dosage: UNK
     Dates: start: 2016

REACTIONS (9)
  - Erythema [Recovered/Resolved]
  - Malaise [Recovered/Resolved]
  - Intentional product misuse [Unknown]
  - Cough [Recovered/Resolved]
  - Mass [Recovered/Resolved]
  - Photosensitivity reaction [Unknown]
  - Pain [Recovering/Resolving]
  - Extra dose administered [Unknown]
  - Lower respiratory tract infection [Unknown]

NARRATIVE: CASE EVENT DATE: 2016
